FAERS Safety Report 5309937-2 (Version None)
Quarter: 2007Q2

REPORT INFORMATION
  Report Type: 
  Country: None (occurrence: None)
  Receive Date: 20070427
  Receipt Date: 20070418
  Transmission Date: 20071010
  Serious: Yes (Hospitalization)
  Sender: FDA-Public Use
  Company Number: ES-ELI_LILLY_AND_COMPANY-ES200704005094

PATIENT
  Age: 71 Year
  Sex: Female

DRUGS (4)
  1. FORTEO [Suspect]
     Indication: OSTEOPOROSIS
     Dosage: 20 UG, DAILY (1/D)
     Route: 058
     Dates: start: 20070201, end: 20070413
  2. FORTEO [Suspect]
     Dosage: 20 UG, DAILY (1/D)
     Route: 058
     Dates: start: 20070414
  3. ENALAPRIL MALEATE [Concomitant]
  4. TRANSDERM PATCH [Concomitant]

REACTIONS (4)
  - BILIARY TRACT DISORDER [None]
  - JAUNDICE [None]
  - PAIN [None]
  - PYREXIA [None]
